FAERS Safety Report 5995060-0 (Version None)
Quarter: 2008Q4

REPORT INFORMATION
  Report Type: 
  Country: None (occurrence: None)
  Receive Date: 20081212
  Receipt Date: 20080916
  Transmission Date: 20090506
  Serious: No
  Sender: FDA-Public Use
  Company Number: US-ABBOTT-08P-163-0477961-00

PATIENT
  Sex: Female
  Weight: 86.26 kg

DRUGS (1)
  1. HUMIRA [Suspect]
     Indication: RHEUMATOID ARTHRITIS
     Route: 058
     Dates: start: 20080301, end: 20080905

REACTIONS (4)
  - FATIGUE [None]
  - IMMUNE SYSTEM DISORDER [None]
  - INJECTION SITE IRRITATION [None]
  - UPPER RESPIRATORY TRACT INFECTION [None]
